FAERS Safety Report 8046754-7 (Version None)
Quarter: 2012Q1

REPORT INFORMATION
  Report Type: 
  Country: None (occurrence: None)
  Receive Date: 20120116
  Receipt Date: 20120111
  Transmission Date: 20120608
  Serious: Yes (Hospitalization, Other)
  Sender: FDA-Public Use
  Company Number: US-BIOGENIDEC-2011BI043634

PATIENT
  Age: 48 Year
  Sex: Female

DRUGS (11)
  1. ZANAFLEX [Concomitant]
     Route: 048
  2. ZIAC [Concomitant]
     Route: 048
     Dates: end: 20110725
  3. TYSABRI [Suspect]
     Indication: RELAPSING-REMITTING MULTIPLE SCLEROSIS
     Route: 042
     Dates: start: 20091210
  4. ZYRTEC [Concomitant]
     Route: 048
  5. TRAMADOL HCL [Concomitant]
     Route: 048
     Dates: start: 20101230
  6. K-PHOS ORIGINAL [Concomitant]
     Route: 048
     Dates: end: 20110725
  7. EXTRA STRENGTH TYLENOL [Concomitant]
     Route: 048
  8. RYZOLT [Concomitant]
     Route: 048
     Dates: end: 20110725
  9. HEMOCYTE [Concomitant]
     Route: 048
     Dates: end: 20110725
  10. HEMOCYTE [Concomitant]
     Route: 048
     Dates: end: 20110725
  11. ZIAC [Concomitant]
     Route: 048
     Dates: end: 20110725

REACTIONS (2)
  - MULTIPLE SCLEROSIS RELAPSE [None]
  - PROGRESSIVE MULTIFOCAL LEUKOENCEPHALOPATHY [None]
